FAERS Safety Report 7916229-1 (Version None)
Quarter: 2011Q4

REPORT INFORMATION
  Report Type: 
  Country: None (occurrence: None)
  Receive Date: 20111116
  Receipt Date: 20111108
  Transmission Date: 20120403
  Serious: No
  Sender: FDA-Public Use
  Company Number: US-BIOGENIDEC-2011BI039822

PATIENT
  Age: 42 Year
  Sex: Female

DRUGS (14)
  1. VESICARE [Concomitant]
     Route: 048
  2. TRAMADOL HCL [Concomitant]
     Route: 048
  3. PROVIGIL [Concomitant]
     Route: 048
  4. LEXAPRO [Concomitant]
     Route: 048
  5. TYSABRI [Suspect]
     Indication: MULTIPLE SCLEROSIS
     Route: 042
     Dates: start: 20110604
  6. COPAXONE [Concomitant]
     Route: 058
  7. NUVIGIL [Concomitant]
     Route: 048
  8. BACLOFEN [Concomitant]
     Route: 048
  9. AMBIEN [Concomitant]
     Route: 048
  10. AMPYRA [Concomitant]
     Route: 048
  11. MARINOL [Concomitant]
     Route: 048
  12. OXYTROL [Concomitant]
     Route: 062
  13. DETROL [Concomitant]
     Route: 048
  14. VIAGRA [Concomitant]
     Route: 048

REACTIONS (5)
  - ACCIDENT [None]
  - DEPRESSED MOOD [None]
  - DYSSTASIA [None]
  - UPPER LIMB FRACTURE [None]
  - ABASIA [None]
